FAERS Safety Report 10023356 (Version 1)
Quarter: 2014Q1

REPORT INFORMATION
  Report Type: Spontaneous
  Country: IT (occurrence: IT)
  Receive Date: 20140320
  Receipt Date: 20140320
  Transmission Date: 20141002
  Serious: Yes (Hospitalization)
  Sender: FDA-Public Use
  Company Number: IT-DRREDDYS-GER/ITL/14/0038942

PATIENT
  Age: 90 Year
  Sex: Female

DRUGS (2)
  1. QUETIAPINE [Suspect]
     Indication: COGNITIVE DISORDER
     Route: 048
  2. LORMETAZEPAM [Suspect]
     Indication: COGNITIVE DISORDER
     Route: 048
     Dates: start: 20130816, end: 20130916

REACTIONS (1)
  - Sopor [Recovering/Resolving]
